FAERS Safety Report 9116251 (Version 3)
Quarter: 2014Q2

REPORT INFORMATION
  Report Type: Report from Study
  Country: GB (occurrence: GB)
  Receive Date: 20130225
  Receipt Date: 20140401
  Transmission Date: 20141212
  Serious: Yes (Death, Hospitalization, Other)
  Sender: FDA-Public Use
  Company Number: GB-JNJFOC-20130211367

PATIENT
  Age: 29 Year
  Sex: Male
  Weight: 114.6 kg

DRUGS (25)
  1. REMICADE [Suspect]
     Indication: PSORIASIS
     Route: 042
     Dates: start: 20110831
  2. REMICADE [Suspect]
     Indication: PSORIASIS
     Route: 042
     Dates: start: 20111123
  3. REMICADE [Suspect]
     Indication: PSORIASIS
     Route: 042
     Dates: start: 20110817
  4. REMICADE [Suspect]
     Indication: PSORIASIS
     Route: 042
     Dates: start: 20110928
  5. REMICADE [Suspect]
     Indication: PSORIASIS
     Route: 042
     Dates: end: 20120118
  6. TACROLIMUS [Suspect]
     Indication: PRODUCT USED FOR UNKNOWN INDICATION
  7. OMEPRAZOLE [Concomitant]
     Route: 065
     Dates: start: 20120125
  8. AMLODIPINE [Concomitant]
     Route: 065
     Dates: start: 20120125
  9. BISOPROLOL [Concomitant]
     Dosage: AT NIGHT
     Route: 065
     Dates: start: 20120125
  10. ALIMEMAZINE [Concomitant]
     Route: 065
     Dates: start: 20101008, end: 20120125
  11. ALIMEMAZINE [Concomitant]
     Route: 065
     Dates: start: 20120125
  12. HYDROXYZINE [Concomitant]
     Dosage: AT NIGHT
     Route: 065
     Dates: start: 20120411
  13. CHLORPHENAMINE [Concomitant]
     Route: 065
     Dates: start: 20120411
  14. FLUOXETINE [Concomitant]
     Route: 065
     Dates: start: 20120125
  15. ACYCLOVIR [Concomitant]
     Route: 065
  16. CLARITHROMYCIN [Concomitant]
     Route: 065
  17. DEPTROPINE [Concomitant]
     Route: 065
  18. POSACONAZOLE [Concomitant]
     Route: 065
  19. CODEINE PHOSPHATE [Concomitant]
     Route: 065
     Dates: start: 20101008, end: 20120125
  20. PARACETAMOL [Concomitant]
     Route: 065
     Dates: start: 20101008, end: 20120125
  21. TRIFLUOPERAZINE [Concomitant]
     Route: 065
     Dates: start: 20101008, end: 20120125
  22. ZOPICLONE [Concomitant]
     Route: 065
     Dates: start: 20101008, end: 20120418
  23. ENOXAPARIN [Concomitant]
     Route: 065
     Dates: start: 20101008, end: 20120125
  24. PREDNISOLONE [Concomitant]
     Route: 065
     Dates: start: 20111229, end: 20120125
  25. METOCLOPRAMIDE [Concomitant]
     Route: 065
     Dates: start: 20120411, end: 20120416

REACTIONS (8)
  - Acute respiratory distress syndrome [Fatal]
  - Acute myeloid leukaemia [Fatal]
  - Transplant [Unknown]
  - Pneumonitis [Unknown]
  - Mucosal inflammation [Unknown]
  - Hypoxia [Unknown]
  - Enterococcal infection [Unknown]
  - Eosinophilia [Unknown]
